FAERS Safety Report 21359700 (Version 1)
Quarter: 2022Q3

REPORT INFORMATION
  Report Type: Spontaneous
  Country: US (occurrence: None)
  Receive Date: 20220921
  Receipt Date: 20220921
  Transmission Date: 20221026
  Serious: No
  Sender: FDA-Public Use
  Company Number: None

PATIENT
  Age: 23 Year
  Sex: Female
  Weight: 50.85 kg

DRUGS (1)
  1. CREST PRO-HEALTH ENAMEL REPAIR AND GUM ADVANCED WHITENING [Suspect]
     Active Substance: STANNOUS FLUORIDE
     Indication: Tooth disorder
     Dates: start: 20220918, end: 20220920

REACTIONS (4)
  - Nausea [None]
  - Headache [None]
  - Musculoskeletal stiffness [None]
  - Diarrhoea [None]

NARRATIVE: CASE EVENT DATE: 20220919
